FAERS Safety Report 18973751 (Version 1)
Quarter: 2021Q1

REPORT INFORMATION
  Report Type: Spontaneous
  Country: US (occurrence: US)
  Receive Date: 20210305
  Receipt Date: 20210305
  Transmission Date: 20210420
  Serious: No
  Sender: FDA-Public Use
  Company Number: ALC2019US000702

PATIENT
  Sex: Male

DRUGS (2)
  1. TETRACAINE STERI?UNITS [Suspect]
     Active Substance: TETRACAINE
     Indication: HYPOAESTHESIA
  2. TETRACAINE STERI?UNITS [Suspect]
     Active Substance: TETRACAINE
     Indication: PAIN
     Dosage: 3?4 DROPS
     Route: 065
     Dates: start: 20190828

REACTIONS (2)
  - Off label use [Unknown]
  - Mydriasis [Recovered/Resolved]

NARRATIVE: CASE EVENT DATE: 20190828
